FAERS Safety Report 7199518-0 (Version None)
Quarter: 2010Q4

REPORT INFORMATION
  Report Type: 
  Country: None (occurrence: None)
  Receive Date: 20101228
  Receipt Date: 20101215
  Transmission Date: 20110411
  Serious: Yes (Other)
  Sender: FDA-Public Use
  Company Number: PHHY2010DE85935

PATIENT
  Age: 65 Year
  Sex: Male

DRUGS (2)
  1. DAFIRO HCT [Suspect]
     Dosage: 10/160/12.5 MG
  2. ASPIRIN [Concomitant]

REACTIONS (3)
  - CIRCULATORY COLLAPSE [None]
  - FALL [None]
  - HEART RATE IRREGULAR [None]
